FAERS Safety Report 15671002 (Version 9)
Quarter: 2024Q2

REPORT INFORMATION
  Report Type: Spontaneous
  Country: US (occurrence: US)
  Receive Date: 20181129
  Receipt Date: 20240524
  Transmission Date: 20240716
  Serious: Yes (Other)
  Sender: FDA-Public Use
  Company Number: US-PFIZER INC-2018486845

PATIENT
  Age: 58 Year
  Sex: Female

DRUGS (13)
  1. XELJANZ XR [Suspect]
     Active Substance: TOFACITINIB CITRATE
     Indication: Rheumatoid arthritis
     Dosage: 11 MG, DAILY
     Route: 048
  2. HERBALS\TURMERIC [Concomitant]
     Active Substance: HERBALS\TURMERIC
     Dosage: UNK
  3. CANNABIDIOL\HERBALS [Concomitant]
     Active Substance: CANNABIDIOL\HERBALS
     Dosage: UNK
  4. ALEVE [Concomitant]
     Active Substance: NAPROXEN SODIUM
  5. PANTOPRAZOLE [Concomitant]
     Active Substance: PANTOPRAZOLE
  6. PREDNISONE [Concomitant]
     Active Substance: PREDNISONE
  7. CLARITIN [Concomitant]
     Active Substance: LORATADINE
  8. CYCLOBENZAPRINE [Concomitant]
     Active Substance: CYCLOBENZAPRINE
  9. DILTIAZEM [Concomitant]
     Active Substance: DILTIAZEM
  10. LOSARTAN [Concomitant]
     Active Substance: LOSARTAN
  11. MAGNESIUM [Concomitant]
     Active Substance: MAGNESIUM
  12. METOPROLOL [Concomitant]
     Active Substance: METOPROLOL
  13. VITAMINS NOS [Concomitant]
     Active Substance: VITAMINS

REACTIONS (13)
  - Dementia [Unknown]
  - Suicidal ideation [Unknown]
  - Cholecystectomy [Unknown]
  - Drug ineffective [Unknown]
  - Tinea pedis [Recovered/Resolved]
  - Skin odour abnormal [Recovered/Resolved]
  - Fatigue [Unknown]
  - Myalgia [Unknown]
  - Vitreous floaters [Unknown]
  - Rash [Unknown]
  - Rash pruritic [Unknown]
  - Pain [Unknown]
  - Paranoia [Unknown]
